FAERS Safety Report 19742004 (Version 2)
Quarter: 2022Q1

REPORT INFORMATION
  Report Type: Spontaneous
  Country: US (occurrence: US)
  Receive Date: 20210825
  Receipt Date: 20220208
  Transmission Date: 20220423
  Serious: No
  Sender: FDA-Public Use
  Company Number: US-BRISTOL-MYERS SQUIBB COMPANY-BMS-2021-083186

PATIENT
  Age: 71 Year
  Sex: Male
  Weight: 93.89 kg

DRUGS (2)
  1. OPDIVO [Suspect]
     Active Substance: NIVOLUMAB
     Indication: Malignant melanoma
     Dosage: UNK, Q3WK
     Route: 042
     Dates: start: 202107
  2. YERVOY [Suspect]
     Active Substance: IPILIMUMAB
     Indication: Malignant melanoma
     Dosage: UNK UNK, Q3WK
     Route: 042
     Dates: start: 202107

REACTIONS (2)
  - Diarrhoea [Unknown]
  - Cough [Unknown]
